FAERS Safety Report 6077615-0 (Version None)
Quarter: 2009Q1

REPORT INFORMATION
  Report Type: 
  Country: None (occurrence: None)
  Receive Date: 20090211
  Receipt Date: 20090204
  Transmission Date: 20090719
  Serious: Yes (Hospitalization)
  Sender: FDA-Public Use
  Company Number: 1000003790

PATIENT
  Age: 77 Year
  Sex: Male

DRUGS (9)
  1. ESCITALOPRAM [Suspect]
     Indication: MAJOR DEPRESSION
     Dosage: 10 MG (10 MG, 1 IN 1 D), ORAL
     Route: 048
     Dates: start: 20080701, end: 20090120
  2. THALIDOMIDE (TABLETS) [Suspect]
     Indication: MULTIPLE MYELOMA
     Dosage: 25 MG (25 MG, 1 IN 1 D), ORAL
     Route: 048
     Dates: start: 20081001, end: 20081201
  3. RYTMONORM (TABLETS) [Concomitant]
  4. CORTONE ACETATO (TABLETS) [Concomitant]
  5. LASIX [Concomitant]
  6. FOLINA (TABLETS) [Concomitant]
  7. BENXOL [Concomitant]
  8. ALLOPURINOL [Concomitant]
  9. EPREX [Concomitant]

REACTIONS (4)
  - CONFUSIONAL STATE [None]
  - HALLUCINATIONS, MIXED [None]
  - MYOCLONUS [None]
  - POSTURE ABNORMAL [None]
